FAERS Safety Report 16667922 (Version 1)
Quarter: 2019Q3

REPORT INFORMATION
  Report Type: Spontaneous
  Country: CN (occurrence: CN)
  Receive Date: 20190805
  Receipt Date: 20190805
  Transmission Date: 20191004
  Serious: Yes (Other)
  Sender: FDA-Public Use
  Company Number: CN-BAYER-2019-140101

PATIENT
  Sex: Male
  Weight: 52 kg

DRUGS (3)
  1. LEVOFLOXACIN HYDROCHLORIDE [Suspect]
     Active Substance: LEVOFLOXACIN HYDROCHLORIDE
     Indication: INFECTION
     Dosage: 0.5 G, QD
     Route: 041
     Dates: start: 20190122, end: 20190126
  2. TAZOBACTAM SODIUM AND PIPERACILLIN SODIUM [Suspect]
     Active Substance: PIPERACILLIN SODIUM\TAZOBACTAM SODIUM
     Indication: INFECTION
     Dosage: 2.25 G, TID
     Route: 041
     Dates: start: 20190126, end: 20190128
  3. AVELOX [Suspect]
     Active Substance: MOXIFLOXACIN HYDROCHLORIDE
     Indication: INFECTION
     Dosage: 0.4 G, QD
     Route: 048
     Dates: start: 20190126, end: 20190128

REACTIONS (2)
  - Confusional state [None]
  - Delirium [None]

NARRATIVE: CASE EVENT DATE: 20190126
